FAERS Safety Report 18591645 (Version 7)
Quarter: 2024Q4

REPORT INFORMATION
  Report Type: Spontaneous
  Country: US (occurrence: US)
  Receive Date: 20201208
  Receipt Date: 20241216
  Transmission Date: 20250115
  Serious: No
  Sender: SANOFI AVENTIS
  Company Number: US-SANOFI-00377442

PATIENT
  Age: 78 Year
  Sex: Female

DRUGS (3)
  1. TOUJEO [Suspect]
     Active Substance: INSULIN GLARGINE
     Indication: Type 2 diabetes mellitus
     Dosage: 16 IU, BID
     Route: 065
     Dates: start: 20201201
  2. TOUJEO [Suspect]
     Active Substance: INSULIN GLARGINE
     Dosage: 30 UNITS QD AND DRUG TREATMENT DURATION:2 DAYS
     Route: 058
  3. TOUJEO [Suspect]
     Active Substance: INSULIN GLARGINE
     Dosage: 30 UNITS IN THE MORNING, AND 4 UNITS AT NIGHT

REACTIONS (8)
  - Headache [Unknown]
  - Injection site pain [Unknown]
  - Incorrect dose administered by device [Unknown]
  - Device operational issue [Unknown]
  - Headache [Unknown]
  - Blood glucose increased [Unknown]
  - Off label use [Unknown]
  - Intentional product misuse [Unknown]

NARRATIVE: CASE EVENT DATE: 20201201
